FAERS Safety Report 24380520 (Version 3)
Quarter: 2025Q2

REPORT INFORMATION
  Report Type: Spontaneous
  Country: US (occurrence: US)
  Receive Date: 20240930
  Receipt Date: 20250422
  Transmission Date: 20250717
  Serious: No
  Sender: SANOFI AVENTIS
  Company Number: US-SA-2024SA276934

PATIENT
  Age: 2 Year
  Sex: Male

DRUGS (2)
  1. DUPIXENT [Suspect]
     Active Substance: DUPILUMAB
     Indication: Dermatitis atopic
     Dosage: 200 MG, Q4W
     Route: 058
     Dates: start: 20240611
  2. DUPIXENT [Suspect]
     Active Substance: DUPILUMAB
     Indication: Eczema

REACTIONS (7)
  - Dry skin [Unknown]
  - Product dose omission in error [Unknown]
  - Injection site swelling [Unknown]
  - Inappropriate schedule of product administration [Unknown]
  - Dermatitis atopic [Unknown]
  - Pruritus [Unknown]
  - Scratch [Unknown]

NARRATIVE: CASE EVENT DATE: 20240101
